FAERS Safety Report 8397636-2 (Version None)
Quarter: 2012Q2

REPORT INFORMATION
  Report Type: 
  Country: None (occurrence: None)
  Receive Date: 20120531
  Receipt Date: 20120521
  Transmission Date: 20120825
  Serious: Yes (Hospitalization)
  Sender: FDA-Public Use
  Company Number: US-BAYER-2012-052072

PATIENT
  Age: 43 Year
  Sex: Female
  Weight: 58.1 kg

DRUGS (12)
  1. DROSPIRENONE AND ETHINYL ESTRADIOL [Suspect]
     Indication: CONTRACEPTION
  2. NONSTEROIDALS [Concomitant]
  3. LORCET-HD [Concomitant]
     Dosage: UNK
     Dates: start: 20110610
  4. LORCET-HD [Concomitant]
     Dosage: UNK
     Dates: start: 20110607
  5. IBUPROFEN (ADVIL) [Concomitant]
  6. LORTAB [Concomitant]
     Dosage: 5/325 Q 6 H (HRS) P.R.N
  7. YASMIN [Suspect]
     Indication: CONTRACEPTION
  8. LIDOCAINE [Concomitant]
     Dosage: UNK
     Route: 042
     Dates: start: 20110607
  9. FLEXERIL [Concomitant]
     Dosage: UNK
     Dates: start: 20110607
  10. TYLENOL [Concomitant]
     Indication: HEADACHE
  11. YAZ [Suspect]
     Indication: CONTRACEPTION
     Dosage: 1 TAB PO QD (DAY).
  12. ZOFRAN [Concomitant]
     Dosage: 4 MG, PRN

REACTIONS (4)
  - INTRACRANIAL VENOUS SINUS THROMBOSIS [None]
  - JUGULAR VEIN THROMBOSIS [None]
  - CEREBRAL HAEMORRHAGE [None]
  - TRANSVERSE SINUS THROMBOSIS [None]
